FAERS Safety Report 6134172-8 (Version None)
Quarter: 2009Q1

REPORT INFORMATION
  Report Type: 
  Country: None (occurrence: None)
  Receive Date: 20090326
  Receipt Date: 20081223
  Transmission Date: 20090719
  Serious: No
  Sender: FDA-Public Use
  Company Number: US-AMGEN-US325550

PATIENT
  Sex: Female

DRUGS (8)
  1. NPLATE [Suspect]
     Indication: IDIOPATHIC THROMBOCYTOPENIC PURPURA
     Route: 065
     Dates: start: 20081001
  2. AMBIEN [Concomitant]
     Route: 065
  3. NEURONTIN [Concomitant]
     Route: 065
  4. DOLOPHINE HYDROCHLORIDE [Concomitant]
     Route: 065
  5. LISINOPRIL [Concomitant]
     Route: 065
  6. PAXIL [Concomitant]
     Route: 065
  7. VALIUM [Concomitant]
     Route: 065
  8. LASIX [Concomitant]
     Route: 065

REACTIONS (2)
  - LOGORRHOEA [None]
  - TACHYPHRENIA [None]
